FAERS Safety Report 14376354 (Version 1)
Quarter: 2018Q1

REPORT INFORMATION
  Report Type: Spontaneous
  Country: US (occurrence: US)
  Receive Date: 20180110
  Receipt Date: 20180110
  Transmission Date: 20180509
  Serious: Yes (Hospitalization)
  Sender: FDA-Public Use
  Company Number: None

PATIENT
  Age: 60 Year
  Sex: Male
  Weight: 63.46 kg

DRUGS (1)
  1. LISINOPRIL. [Suspect]
     Active Substance: LISINOPRIL
     Indication: HYPERTENSION
     Route: 048
     Dates: start: 20161101, end: 20171130

REACTIONS (18)
  - Lymphadenopathy [None]
  - Dehydration [None]
  - Drug reaction with eosinophilia and systemic symptoms [None]
  - Weight decreased [None]
  - Back pain [None]
  - Rash [None]
  - Swollen tongue [None]
  - Acute kidney injury [None]
  - Rash pruritic [None]
  - Skin cancer [None]
  - Drug hypersensitivity [None]
  - Fatigue [None]
  - Leukocytosis [None]
  - Eosinophilia [None]
  - Hypoaesthesia oral [None]
  - Polycythaemia [None]
  - Abdominal pain [None]
  - Reynold^s syndrome [None]

NARRATIVE: CASE EVENT DATE: 20171005
